FAERS Safety Report 7784585-3 (Version None)
Quarter: 2011Q3

REPORT INFORMATION
  Report Type: 
  Country: None (occurrence: None)
  Receive Date: 20110928
  Receipt Date: 20110622
  Transmission Date: 20111222
  Serious: No
  Sender: FDA-Public Use
  Company Number: US-BAYER-2011-058901

PATIENT
  Sex: Female

DRUGS (3)
  1. ALEVE (CAPLET) [Suspect]
     Indication: PRODUCT USED FOR UNKNOWN INDICATION
     Dosage: 1 U, UNK
     Route: 048
  2. EXCEDRIN (MIGRAINE) [Concomitant]
     Dosage: 3 U, UNK
     Route: 048
  3. IBUPROFEN (ADVIL) [Concomitant]
     Dosage: 4 U, UNK
     Route: 048

REACTIONS (1)
  - NO ADVERSE EVENT [None]
